FAERS Safety Report 18969061 (Version 3)
Quarter: 2021Q2

REPORT INFORMATION
  Report Type: Report from Study
  Country: US (occurrence: US)
  Receive Date: 20210304
  Receipt Date: 20210604
  Transmission Date: 20210717
  Serious: No
  Sender: FDA-Public Use
  Company Number: NVSC2021US050604

PATIENT
  Age: 63 Year
  Sex: Male

DRUGS (1)
  1. ENTRESTO [Suspect]
     Active Substance: SACUBITRIL\VALSARTAN
     Indication: CARDIAC FAILURE
     Dosage: 50 MG, BID (24.26)
     Route: 065
     Dates: start: 20210201

REACTIONS (6)
  - Sleep disorder [Recovering/Resolving]
  - Throat clearing [Unknown]
  - Pain in jaw [Recovering/Resolving]
  - Headache [Recovering/Resolving]
  - Cough [Unknown]
  - Vision blurred [Unknown]

NARRATIVE: CASE EVENT DATE: 202102
